FAERS Safety Report 16187704 (Version 2)
Quarter: 2019Q2

REPORT INFORMATION
  Report Type: Spontaneous
  Country: AT (occurrence: AT)
  Receive Date: 20190412
  Receipt Date: 20190418
  Transmission Date: 20190711
  Serious: Yes (Other)
  Sender: FDA-Public Use
  Company Number: AT-ASTRAZENECA-2019SE54844

PATIENT
  Age: 77 Year
  Sex: Female
  Weight: 50 kg

DRUGS (11)
  1. OLEOVIT D3 [Concomitant]
     Active Substance: CHOLECALCIFEROL
  2. INDERAL [Concomitant]
     Active Substance: PROPRANOLOL HYDROCHLORIDE
  3. ATORVASTATIN [Concomitant]
     Active Substance: ATORVASTATIN
  4. THROMBO-ASS [Suspect]
     Active Substance: ASPIRIN
     Route: 048
  5. ZOLDEM [Concomitant]
     Active Substance: ZOLPIDEM TARTRATE
  6. MIRTAZAPINE. [Concomitant]
     Active Substance: MIRTAZAPINE
  7. QUETIALAN XR [Suspect]
     Active Substance: QUETIAPINE FUMARATE
     Indication: MENTAL DISORDER
     Route: 048
  8. SPIOLTO RESPIMAT [Concomitant]
     Active Substance: OLODATEROL HYDROCHLORIDE\TIOTROPIUM BROMIDE MONOHYDRATE
  9. SERTRALINE [Concomitant]
     Active Substance: SERTRALINE HYDROCHLORIDE
  10. CALCIDURAN [Concomitant]
     Dosage: 1-0-0
  11. RAMIPRIL. [Concomitant]
     Active Substance: RAMIPRIL

REACTIONS (2)
  - Haematoma [Not Recovered/Not Resolved]
  - Thrombocytopenia [Not Recovered/Not Resolved]
